FAERS Safety Report 19180339 (Version 2)
Quarter: 2022Q1

REPORT INFORMATION
  Report Type: Spontaneous
  Country: US (occurrence: US)
  Receive Date: 20210426
  Receipt Date: 20220214
  Transmission Date: 20220424
  Serious: No
  Sender: FDA-Public Use
  Company Number: US-PFIZER INC-2021411539

PATIENT
  Age: 64 Year
  Sex: Female
  Weight: 64 kg

DRUGS (6)
  1. SUTENT [Suspect]
     Active Substance: SUNITINIB MALATE
     Indication: Gastrointestinal stromal tumour
     Dosage: 50 MG, CYCLIC (DAILY 28 DAYS ON THEN 14 DAYS OFF)
     Route: 048
     Dates: start: 202102
  2. SUTENT [Suspect]
     Active Substance: SUNITINIB MALATE
     Dosage: 50 MG, CYCLIC (DAILY FOR 2 WEEKS ON AND 1 WEEK OFF)
     Route: 048
  3. GLEEVEC [Concomitant]
     Active Substance: IMATINIB MESYLATE
     Dosage: UNK
  4. FUROSEMIDE [Concomitant]
     Active Substance: FUROSEMIDE
     Dosage: UNK
  5. SPIRONOLACTONE [Concomitant]
     Active Substance: SPIRONOLACTONE
     Dosage: UNK
  6. VITAMIN C [Concomitant]
     Active Substance: ASCORBIC ACID
     Dosage: UNK

REACTIONS (6)
  - Diarrhoea [Unknown]
  - Dizziness [Unknown]
  - Rash [Unknown]
  - Headache [Not Recovered/Not Resolved]
  - Nausea [Unknown]
  - Aphasia [Unknown]
